FAERS Safety Report 23484071 (Version 2)
Quarter: 2024Q1

REPORT INFORMATION
  Report Type: Spontaneous
  Country: US (occurrence: US)
  Receive Date: 20240205
  Receipt Date: 20240218
  Transmission Date: 20240410
  Serious: Yes (Hospitalization, Other)
  Sender: FDA-Public Use
  Company Number: US-MLMSERVICE-20240118-4783089-1

PATIENT
  Age: 64 Year
  Sex: Female

DRUGS (10)
  1. CEFDINIR [Suspect]
     Active Substance: CEFDINIR
     Indication: Lyme arthritis
     Dosage: UNK
     Route: 065
  2. CEFDINIR [Suspect]
     Active Substance: CEFDINIR
     Dosage: UNK
     Route: 065
  3. MINOCYCLINE [Suspect]
     Active Substance: MINOCYCLINE HYDROCHLORIDE
     Indication: Lyme arthritis
     Dosage: UNK
     Route: 065
  4. MINOCYCLINE [Suspect]
     Active Substance: MINOCYCLINE HYDROCHLORIDE
     Dosage: UNK
     Route: 065
  5. DIETARY SUPPLEMENT [Suspect]
     Active Substance: DIETARY SUPPLEMENT
     Indication: Lyme arthritis
     Dosage: UNK
     Route: 065
  6. BACTRIM [Suspect]
     Active Substance: SULFAMETHOXAZOLE\TRIMETHOPRIM
     Indication: Lyme arthritis
     Dosage: UNK
     Route: 065
  7. LAMICTAL [Suspect]
     Active Substance: LAMOTRIGINE
     Indication: Lyme arthritis
     Dosage: UNK
     Route: 065
  8. FLAGYL [Suspect]
     Active Substance: METRONIDAZOLE\METRONIDAZOLE HYDROCHLORIDE
     Indication: Lyme arthritis
     Dosage: UNK
     Route: 065
  9. FLAGYL [Suspect]
     Active Substance: METRONIDAZOLE\METRONIDAZOLE HYDROCHLORIDE
     Dosage: UNK
     Route: 065
  10. MALARONE [Concomitant]
     Active Substance: ATOVAQUONE\PROGUANIL HYDROCHLORIDE
     Indication: Lyme arthritis
     Dosage: UNK
     Route: 065

REACTIONS (3)
  - Vanishing bile duct syndrome [Recovering/Resolving]
  - Cholestatic liver injury [Recovering/Resolving]
  - Drug ineffective [Unknown]
